FAERS Safety Report 6022070-X (Version None)
Quarter: 2008Q4

REPORT INFORMATION
  Report Type: 
  Country: None (occurrence: None)
  Receive Date: 20081229
  Receipt Date: 20081219
  Transmission Date: 20090506
  Serious: Yes (Hospitalization, Other)
  Sender: FDA-Public Use
  Company Number: JP-ABBOTT-08P-087-0492523-00

PATIENT
  Sex: Female
  Weight: 55 kg

DRUGS (5)
  1. KLARICID TABLETS [Suspect]
     Indication: HELICOBACTER INFECTION
     Route: 048
     Dates: start: 20080116, end: 20080121
  2. SAWACILLIN [Suspect]
     Indication: HELICOBACTER INFECTION
     Route: 048
     Dates: start: 20080116, end: 20080121
  3. LANSOPRAZOLE [Concomitant]
     Indication: HELICOBACTER INFECTION
     Route: 048
     Dates: start: 20080116, end: 20080121
  4. GASTER D [Concomitant]
     Indication: DUODENAL ULCER
     Route: 048
     Dates: start: 20080116, end: 20080121
  5. DEPAS [Concomitant]
     Indication: INSOMNIA
     Route: 048

REACTIONS (1)
  - DRUG ERUPTION [None]
